FAERS Safety Report 7684338-0 (Version None)
Quarter: 2011Q3

REPORT INFORMATION
  Report Type: 
  Country: None (occurrence: None)
  Receive Date: 20110815
  Receipt Date: 20110802
  Transmission Date: 20111222
  Serious: No
  Sender: FDA-Public Use
  Company Number: US-B.I. PHARMACEUTICALS,INC./RIDGEFIELD-2011-BP-19255BP

PATIENT
  Sex: Male

DRUGS (3)
  1. COD LIVER OIL [Concomitant]
     Indication: ROUTINE HEALTH MAINTENANCE
     Route: 048
  2. ASPIRIN [Concomitant]
     Indication: ROUTINE HEALTH MAINTENANCE
     Route: 048
  3. PRADAXA [Suspect]
     Indication: ATRIAL FIBRILLATION
     Dosage: 150 MG
     Route: 048
     Dates: start: 20110601, end: 20110703

REACTIONS (2)
  - GASTROINTESTINAL HAEMORRHAGE [None]
  - ARTHRALGIA [None]
